FAERS Safety Report 6403309-5 (Version None)
Quarter: 2009Q4

REPORT INFORMATION
  Report Type: 
  Country: None (occurrence: None)
  Receive Date: 20091016
  Receipt Date: 20090417
  Transmission Date: 20100525
  Serious: No
  Sender: FDA-Public Use
  Company Number: A0779410A

PATIENT
  Age: 43 Year
  Sex: Female

DRUGS (1)
  1. CEFTIN [Suspect]
     Indication: SKIN INFECTION
     Dosage: 500MG TWICE PER DAY
     Route: 048
     Dates: start: 20090405, end: 20090409

REACTIONS (1)
  - RASH [None]
